FAERS Safety Report 6850105-0 (Version None)
Quarter: 2010Q3

REPORT INFORMATION
  Report Type: 
  Country: None (occurrence: None)
  Receive Date: 20100716
  Receipt Date: 20071009
  Transmission Date: 20110219
  Serious: No
  Sender: FDA-Public Use
  Company Number: US-PFIZER INC-2007086148

PATIENT
  Sex: Female
  Weight: 66.8 kg

DRUGS (5)
  1. CHANTIX [Suspect]
     Indication: SMOKING CESSATION THERAPY
     Route: 048
     Dates: start: 20070801, end: 20070901
  2. PROZAC [Concomitant]
  3. XANAX [Concomitant]
  4. LIPITOR [Concomitant]
     Indication: CARDIOVASCULAR EVENT PROPHYLAXIS
  5. PLAVIX [Concomitant]

REACTIONS (6)
  - AMNESIA [None]
  - DRY MOUTH [None]
  - FEELING ABNORMAL [None]
  - NAUSEA [None]
  - RETCHING [None]
  - SOMNOLENCE [None]
